FAERS Safety Report 10247203 (Version 2)
Quarter: 2014Q2

REPORT INFORMATION
  Report Type: Spontaneous
  Country: JP (occurrence: JP)
  Receive Date: 20140619
  Receipt Date: 20140625
  Transmission Date: 20141212
  Serious: Yes (Hospitalization, Other)
  Sender: FDA-Public Use
  Company Number: PHHY2014JP075801

PATIENT
  Age: 47 Year
  Sex: Female

DRUGS (2)
  1. NEORAL [Suspect]
     Indication: PROPHYLAXIS AGAINST TRANSPLANT REJECTION
     Dosage: 1 ML DAILY
     Route: 048
  2. NEORAL [Suspect]
     Dosage: 0.5 CC PER TIME THROUGH GASTRIC FISTULA
     Dates: start: 20140616

REACTIONS (2)
  - Cerebral haemorrhage [Recovered/Resolved with Sequelae]
  - Angiopathy [Unknown]
